FAERS Safety Report 5587488-8 (Version None)
Quarter: 2008Q1

REPORT INFORMATION
  Report Type: 
  Country: None (occurrence: None)
  Receive Date: 20080110
  Receipt Date: 20071228
  Transmission Date: 20080703
  Serious: Yes (Hospitalization)
  Sender: FDA-Public Use
  Company Number: MW-GILEAD-2007-0011195

PATIENT
  Sex: Male
  Weight: 2.8 kg

DRUGS (4)
  1. TENOFOVIR DISOPROXIL FUMARATE [Suspect]
     Indication: HIV INFECTION
     Route: 064
     Dates: start: 20070122, end: 20070122
  2. NEVIRAPINE [Suspect]
     Route: 064
     Dates: start: 20070122
  3. FERROUS SULFATE [Concomitant]
     Route: 064
  4. ERGOMETRIME [Concomitant]
     Route: 064

REACTIONS (1)
  - NEONATAL RESPIRATORY DISTRESS SYNDROME [None]
